FAERS Safety Report 14714886 (Version 2)
Quarter: 2018Q2

REPORT INFORMATION
  Report Type: Spontaneous
  Country: US (occurrence: US)
  Receive Date: 20180404
  Receipt Date: 20180409
  Transmission Date: 20180711
  Serious: Yes (Other)
  Sender: FDA-Public Use
  Company Number: US-PFIZER INC-2018132308

PATIENT
  Age: 51 Year
  Sex: Female
  Weight: 78.2 kg

DRUGS (2)
  1. DILANTIN [Suspect]
     Active Substance: PHENYTOIN
     Indication: GENERALISED TONIC-CLONIC SEIZURE
     Dosage: 100 MG, 1X/DAY(100 MG CAPSULES AT BED TIME)
     Route: 048
  2. PHENOBARBITAL. [Concomitant]
     Active Substance: PHENOBARBITAL
     Indication: GENERALISED TONIC-CLONIC SEIZURE
     Dosage: 194.4 MG, 1X/DAY(TWO; 97.2 MG TABLETS AT BED TIME)
     Route: 048

REACTIONS (5)
  - Renal failure [Unknown]
  - Drug dose omission [Not Recovered/Not Resolved]
  - Lymphoedema [Recovering/Resolving]
  - Body height decreased [Unknown]
  - Fall [Unknown]

NARRATIVE: CASE EVENT DATE: 2005
